FAERS Safety Report 6235138-X (Version None)
Quarter: 2009Q2

REPORT INFORMATION
  Report Type: 
  Country: None (occurrence: None)
  Receive Date: 20090618
  Receipt Date: 20090612
  Transmission Date: 20091009
  Serious: Yes (Other)
  Sender: FDA-Public Use
  Company Number: CN-AVENTIS-200914656GDDC

PATIENT
  Age: 41 Year
  Sex: Female

DRUGS (4)
  1. LANTUS [Suspect]
     Indication: DIABETES MELLITUS
     Route: 058
     Dates: start: 20090413, end: 20090413
  2. LANTUS [Suspect]
     Route: 058
     Dates: start: 20090414, end: 20090414
  3. DRUG USED IN DIABETES [Concomitant]
     Indication: DIABETES MELLITUS
     Route: 048
  4. IRBESARTAN [Concomitant]
     Indication: HYPERTENSION
     Route: 048

REACTIONS (3)
  - DYSPNOEA [None]
  - HYPERHIDROSIS [None]
  - MYOCARDIAL ISCHAEMIA [None]
